FAERS Safety Report 6618801-8 (Version None)
Quarter: 2010Q1

REPORT INFORMATION
  Report Type: 
  Country: None (occurrence: None)
  Receive Date: 20100305
  Receipt Date: 20100305
  Transmission Date: 20100710
  Serious: Yes (Hospitalization)
  Sender: FDA-Public Use
  Company Number: None

PATIENT
  Sex: Male

DRUGS (1)
  1. ZYBAN [Suspect]
     Dosage: SUMMER OF '98
     Dates: start: 19980101

REACTIONS (2)
  - POLYARTHRITIS [None]
  - SERUM SICKNESS [None]
